FAERS Safety Report 4535895-4 (Version None)
Quarter: 2004Q4

REPORT INFORMATION
  Report Type: 
  Country: None (occurrence: None)
  Receive Date: 20041223
  Receipt Date: 20030617
  Transmission Date: 20050328
  Serious: Yes (Hospitalization)
  Sender: FDA-Public Use
  Company Number: PHNU2003DE02314

PATIENT
  Age: 68 Year
  Sex: Female
  Weight: 59 kg

DRUGS (7)
  1. ESIDRIX [Suspect]
     Indication: HYPERTENSION
     Dosage: 25 MG, QD
     Route: 048
     Dates: end: 20030513
  2. BACLOFEN [Suspect]
     Dosage: 25 MG, UNK
     Route: 048
     Dates: start: 20010201
  3. BENALAPRIL [Suspect]
     Indication: HYPERTENSION
     Dosage: 5 MG, QD
     Route: 048
     Dates: end: 20030510
  4. BENALAPRIL [Suspect]
     Dates: start: 20030515
  5. DOXEPIN HCL [Suspect]
     Indication: PAIN
     Dosage: 75 MG, QD
     Route: 048
     Dates: start: 20010201
  6. CELEBREX [Concomitant]
     Indication: MIGRAINE
     Dosage: 200 MG, PRN
     Route: 048
     Dates: end: 20030401
  7. METOCLOPRAMIDE [Concomitant]
     Indication: MIGRAINE
     Dosage: 30 GTT, PRN
     Route: 048
     Dates: end: 20030401

REACTIONS (7)
  - DIZZINESS [None]
  - DRUG INTERACTION [None]
  - EYE ROLLING [None]
  - FALL [None]
  - HYPOTENSION [None]
  - ORTHOSTATIC HYPOTENSION [None]
  - TREMOR [None]
